FAERS Safety Report 19399010 (Version 3)
Quarter: 2021Q2

REPORT INFORMATION
  Report Type: Spontaneous
  Country: JP (occurrence: JP)
  Receive Date: 20210610
  Receipt Date: 20210625
  Transmission Date: 20210717
  Serious: Yes (Hospitalization, Other)
  Sender: FDA-Public Use
  Company Number: JP-ASTELLAS-2021JP010684

PATIENT
  Age: 85 Year
  Sex: Female

DRUGS (4)
  1. VENETOCLAX. [Suspect]
     Active Substance: VENETOCLAX
     Indication: PRODUCT USED FOR UNKNOWN INDICATION
     Dosage: UNK UNK, UNKNOWN FREQ.
     Route: 065
  2. CYLOCIDE [Suspect]
     Active Substance: CYTARABINE
     Indication: PRODUCT USED FOR UNKNOWN INDICATION
     Dosage: UNK UNK, UNKNOWN FREQ.
     Route: 065
  3. AMBISOME [Concomitant]
     Active Substance: AMPHOTERICIN B
     Indication: ASPERGILLUS INFECTION
     Dosage: UNK UNK, UNKNOWN FREQ.
     Route: 065
     Dates: start: 20210621
  4. XOSPATA [Suspect]
     Active Substance: GILTERITINIB
     Indication: ACUTE MYELOID LEUKAEMIA
     Route: 048
     Dates: start: 20210520

REACTIONS (6)
  - Neutrophil count decreased [Recovering/Resolving]
  - Platelet count decreased [Unknown]
  - Hepatic function abnormal [Unknown]
  - Febrile neutropenia [Unknown]
  - White blood cell count decreased [Unknown]
  - Aspergillus infection [Not Recovered/Not Resolved]
